FAERS Safety Report 9382893 (Version 1)
Quarter: 2013Q3

REPORT INFORMATION
  Report Type: Spontaneous
  Country: FR (occurrence: FR)
  Receive Date: 20130703
  Receipt Date: 20130703
  Transmission Date: 20140515
  Serious: Yes (Death, Hospitalization, Other)
  Sender: FDA-Public Use
  Company Number: FR-BAXTER-2013BAX024384

PATIENT
  Age: 64 Year
  Sex: Male

DRUGS (11)
  1. SEVOFLURANE [Suspect]
     Indication: PERIPHERAL ARTERY BYPASS
     Route: 055
     Dates: start: 20121219, end: 20121219
  2. SEVOFLURANE [Suspect]
     Indication: ANGIOPLASTY
  3. SEVOFLURANE [Suspect]
     Indication: ARTERECTOMY WITH GRAFT REPLACEMENT
  4. SEVOFLURANE [Suspect]
     Indication: AORTIC STENT INSERTION
  5. SUFENTANIL [Suspect]
     Indication: PRODUCT USED FOR UNKNOWN INDICATION
     Route: 042
     Dates: start: 20121219, end: 20121219
  6. PROPOFOL [Suspect]
     Indication: PRODUCT USED FOR UNKNOWN INDICATION
     Route: 042
     Dates: start: 20121219, end: 20121219
  7. NIMBEX [Suspect]
     Indication: PRODUCT USED FOR UNKNOWN INDICATION
     Route: 042
     Dates: start: 20121219, end: 20121219
  8. HEPARINE SODIQUE [Suspect]
     Indication: PRODUCT USED FOR UNKNOWN INDICATION
     Route: 042
     Dates: start: 20121219
  9. HEPARINE SODIQUE [Suspect]
     Route: 042
     Dates: start: 20121219
  10. HYPNOMIDATE [Suspect]
     Indication: PRODUCT USED FOR UNKNOWN INDICATION
     Route: 042
     Dates: start: 20121219, end: 20121219
  11. CEFAMANDOLE [Suspect]
     Indication: PRODUCT USED FOR UNKNOWN INDICATION
     Route: 042
     Dates: start: 20121219, end: 20121219

REACTIONS (7)
  - Intestinal ischaemia [Fatal]
  - General physical health deterioration [Unknown]
  - Pulse absent [Unknown]
  - Lactic acidosis [Unknown]
  - Syncope [Unknown]
  - Haemorrhage [Unknown]
  - Livedo reticularis [Unknown]
